FAERS Safety Report 12248801 (Version 1)
Quarter: 2016Q2

REPORT INFORMATION
  Report Type: Spontaneous
  Country: US (occurrence: None)
  Receive Date: 20160407
  Receipt Date: 20160407
  Transmission Date: 20160815
  Serious: No
  Sender: FDA-Public Use
  Company Number: None

PATIENT
  Age: 61 Year
  Sex: Male

DRUGS (1)
  1. REPATHA [Suspect]
     Active Substance: EVOLOCUMAB
     Route: 058
     Dates: start: 20160301

REACTIONS (6)
  - Back pain [None]
  - Influenza like illness [None]
  - Nasopharyngitis [None]
  - Post procedural complication [None]
  - Myalgia [None]
  - Respiratory tract congestion [None]

NARRATIVE: CASE EVENT DATE: 20160406
